FAERS Safety Report 13794596 (Version 1)
Quarter: 2017Q3

REPORT INFORMATION
  Report Type: Spontaneous
  Country: US (occurrence: US)
  Receive Date: 20170726
  Receipt Date: 20170726
  Transmission Date: 20171127
  Serious: Yes (Other)
  Sender: FDA-Public Use
  Company Number: US-BAXTER-2017BAX029114

PATIENT
  Sex: Male

DRUGS (3)
  1. FLUCONAZOLE INJECTION, USP [Suspect]
     Active Substance: FLUCONAZOLE
     Indication: FAECES DISCOLOURED
     Dosage: DOSAGE FORM NOT SPECIFIED
     Route: 065
  2. IMBRUVICA [Suspect]
     Active Substance: IBRUTINIB
     Indication: B-CELL LYMPHOMA
     Route: 048
     Dates: start: 20170418
  3. IMBRUVICA [Suspect]
     Active Substance: IBRUTINIB
     Dosage: DOSE REDUCED WHILE ON THE FLUCONAZOLE, REDUCED TO 1 CAPSULE DAILY
     Route: 048
     Dates: start: 2017, end: 2017

REACTIONS (2)
  - Contusion [Unknown]
  - Haemorrhage [Unknown]
